FAERS Safety Report 24911772 (Version 4)
Quarter: 2025Q4

REPORT INFORMATION
  Report Type: Spontaneous
  Country: US (occurrence: US)
  Receive Date: 20250131
  Receipt Date: 20251229
  Transmission Date: 20260118
  Serious: Yes (Other)
  Sender: LUNDBECK
  Company Number: US-LUNDBECK-DKLU4009146

PATIENT
  Age: 72 Year
  Sex: Female

DRUGS (2)
  1. VYEPTI [Suspect]
     Active Substance: EPTINEZUMAB-JJMR
     Indication: Migraine
     Dosage: 100 MILLIGRAM
     Route: 041
     Dates: start: 202403
  2. VYEPTI [Suspect]
     Active Substance: EPTINEZUMAB-JJMR
     Dosage: 200 MILLIGRAM
     Route: 041

REACTIONS (5)
  - Cerebrovascular accident [Unknown]
  - Off label use [Unknown]
  - Migraine [Unknown]
  - Drug effect less than expected [Recovered/Resolved]
  - Stress [Not Recovered/Not Resolved]
